FAERS Safety Report 5055792-8 (Version None)
Quarter: 2006Q3

REPORT INFORMATION
  Report Type: 
  Country: None (occurrence: None)
  Receive Date: 20060720
  Receipt Date: 20060320
  Transmission Date: 20061208
  Serious: Yes (Hospitalization)
  Sender: FDA-Public Use
  Company Number: PHNU2006DE01369

PATIENT
  Sex: Male

DRUGS (5)
  1. DIOVAN HCT [Suspect]
     Indication: HYPERTENSION
     Dosage: 160 MG/D
     Route: 048
  2. TEGRETOL [Suspect]
     Indication: AFFECTIVE DISORDER
     Dosage: 200 MG/D
     Route: 048
     Dates: end: 20050516
  3. HALDOL [Concomitant]
     Dosage: 2 MG/D
     Route: 048
     Dates: end: 20050429
  4. DOXACOR [Concomitant]
     Indication: HYPERTENSION
     Dosage: 4 MG/D
     Route: 048
     Dates: end: 20050607
  5. OLANZAPINE [Concomitant]

REACTIONS (9)
  - BLOOD CREATININE INCREASED [None]
  - BLOOD UREA INCREASED [None]
  - GAMMA-GLUTAMYLTRANSFERASE INCREASED [None]
  - HYPOKALAEMIA [None]
  - HYPONATRAEMIA [None]
  - LOSS OF CONSCIOUSNESS [None]
  - MANIA [None]
  - SCHIZOAFFECTIVE DISORDER [None]
  - URINARY INCONTINENCE [None]
